FAERS Safety Report 21336401 (Version 1)
Quarter: 2022Q3

REPORT INFORMATION
  Report Type: Spontaneous
  Country: ES (occurrence: ES)
  Receive Date: 20220915
  Receipt Date: 20220915
  Transmission Date: 20221026
  Serious: Yes (Other)
  Sender: FDA-Public Use
  Company Number: None

PATIENT
  Age: 53 Year
  Sex: Female
  Weight: 110 kg

DRUGS (3)
  1. VINCRISTINE [Interacting]
     Active Substance: VINCRISTINE
     Indication: Anaplastic oligodendroglioma
     Dosage: VINCRISTINA (809A) , FREQUENCY TIME : 6 WEEKS  , DURATION : 246 DAYS
     Dates: start: 20210408, end: 20211209
  2. LOMUSTINE [Interacting]
     Active Substance: LOMUSTINE
     Indication: Anaplastic oligodendroglioma
     Dosage: LOMUSTINA (378A) , FREQUENCY TIME : 6 WEEKS   , DURATION : 246 DAYS
     Dates: start: 20210408, end: 20211209
  3. PROCARBAZINE [Interacting]
     Active Substance: PROCARBAZINE
     Indication: Anaplastic oligodendroglioma
     Dosage: PROCARBAZINA (651A) , FREQUENCY TIME : 6 WEEKS , DURATION : 246 DAYS
     Dates: start: 20210408, end: 20211209

REACTIONS (4)
  - Lymphopenia [Recovering/Resolving]
  - Pruritus [Recovering/Resolving]
  - Neutropenia [Recovering/Resolving]
  - Drug interaction [Unknown]

NARRATIVE: CASE EVENT DATE: 20210520
